FAERS Safety Report 5921653-2 (Version None)
Quarter: 2008Q3

REPORT INFORMATION
  Report Type: 
  Country: None (occurrence: None)
  Receive Date: 20080909
  Receipt Date: 20071016
  Transmission Date: 20090109
  Serious: Yes (Death)
  Sender: FDA-Public Use
  Company Number: 163-20785-06120194

PATIENT
  Age: 68 Year
  Sex: Male

DRUGS (21)
  1. THALOMID [Suspect]
     Indication: MULTIPLE MYELOMA
     Dosage: 300 - 400MG, DAILY, ORAL ; 250 MG, 5 IN 1 D, ORAL ; 100 MG, 2 IN1  D, ORAL
     Route: 048
     Dates: start: 20030530, end: 20040101
  2. THALOMID [Suspect]
     Indication: MULTIPLE MYELOMA
     Dosage: 300 - 400MG, DAILY, ORAL ; 250 MG, 5 IN 1 D, ORAL ; 100 MG, 2 IN1  D, ORAL
     Route: 048
     Dates: start: 20050106, end: 20050201
  3. THALOMID [Suspect]
     Indication: MULTIPLE MYELOMA
     Dosage: 300 - 400MG, DAILY, ORAL ; 250 MG, 5 IN 1 D, ORAL ; 100 MG, 2 IN1  D, ORAL
     Route: 048
     Dates: start: 20060131, end: 20061103
  4. DECADRON [Concomitant]
  5. LASIX [Concomitant]
  6. BACTRIM DS [Concomitant]
  7. FISH OIL (FISH OIL) [Concomitant]
  8. TUMS (CALCIUM CARBONATE) [Concomitant]
  9. VITAMIN D [Concomitant]
  10. COUMADIN [Concomitant]
  11. CALCIUM (CALCIUM) [Concomitant]
  12. ATENOLOL [Concomitant]
  13. PRILOSEC [Concomitant]
  14. MULTIVITAMIN [Concomitant]
  15. LACTULOSE [Concomitant]
  16. OLYBURIDE (GLIBENCLAMIDE) [Concomitant]
  17. LORTAB [Concomitant]
  18. OXYCONTIN [Concomitant]
  19. DOCUSATE SODIUM (DOCUSATE SODIUM) [Concomitant]
  20. FLOMAX [Concomitant]
  21. ZAROXOSYN (METOLAZONE) [Concomitant]

REACTIONS (2)
  - MALIGNANT NEOPLASM PROGRESSION [None]
  - MULTIPLE MYELOMA [None]
